FAERS Safety Report 4489294-4 (Version None)
Quarter: 2004Q4

REPORT INFORMATION
  Report Type: 
  Country: None (occurrence: None)
  Receive Date: 20041029
  Receipt Date: 20041011
  Transmission Date: 20050328
  Serious: Yes (Hospitalization)
  Sender: FDA-Public Use
  Company Number: AT-MERCK-0410AUT00022

PATIENT
  Age: 68 Year
  Sex: Female

DRUGS (1)
  1. VIOXX [Suspect]
     Indication: ANKLE FRACTURE
     Route: 048
     Dates: start: 20011003, end: 20040901

REACTIONS (1)
  - MYOCARDIAL INFARCTION [None]
